FAERS Safety Report 11099612 (Version 1)
Quarter: 2015Q2

REPORT INFORMATION
  Report Type: Other
  Country: US (occurrence: US)
  Receive Date: 20150508
  Receipt Date: 20150508
  Transmission Date: 20150821
  Serious: Yes (Other)
  Sender: FDA-Public Use
  Company Number: US-SHIRE-US201503748

PATIENT
  Age: 60 Year
  Sex: Female

DRUGS (1)
  1. VYVANSE [Suspect]
     Active Substance: LISDEXAMFETAMINE DIMESYLATE
     Indication: PRODUCT USED FOR UNKNOWN INDICATION
     Dosage: 1 DF, 1X/DAY:QD (ONE PILL PER DAY)
     Route: 048

REACTIONS (2)
  - Spinal fracture [Unknown]
  - Lower limb fracture [Unknown]

NARRATIVE: CASE EVENT DATE: 201503
